FAERS Safety Report 8489203-7 (Version None)
Quarter: 2012Q3

REPORT INFORMATION
  Report Type: 
  Country: None (occurrence: None)
  Receive Date: 20120705
  Receipt Date: 20120629
  Transmission Date: 20120928
  Serious: Yes (Other)
  Sender: FDA-Public Use
  Company Number: BR-PFIZER INC-2012158078

PATIENT
  Age: 58 Year
  Sex: Female

DRUGS (4)
  1. DIOVAN [Concomitant]
     Indication: BLOOD PRESSURE INCREASED
     Dosage: UNK
     Dates: start: 20120401
  2. LEVOTHYROXINE SODIUM [Concomitant]
     Indication: HYPOTHYROIDISM
     Dosage: UNK
     Dates: start: 19970101
  3. LYRICA [Suspect]
     Indication: FIBROMYALGIA
     Dosage: 75 MG (ONE CAPSULE), 1X/DAY
     Route: 048
     Dates: start: 20120619
  4. TIBOLONE [Concomitant]
     Indication: HORMONE REPLACEMENT THERAPY
     Dosage: UNK

REACTIONS (10)
  - HYPOAESTHESIA ORAL [None]
  - FLUID RETENTION [None]
  - INSOMNIA [None]
  - URTICARIA [None]
  - CONFUSIONAL STATE [None]
  - FATIGUE [None]
  - EYE SWELLING [None]
  - FEELING OF DESPAIR [None]
  - IRRITABILITY [None]
  - PARAESTHESIA ORAL [None]
